FAERS Safety Report 8148701 (Version 2)
Quarter: 2013Q2

REPORT INFORMATION
  Report Type: Spontaneous
  Country: US (occurrence: US)
  Receive Date: 20110922
  Receipt Date: 20130620
  Transmission Date: 20140414
  Serious: Yes (Other)
  Sender: FDA-Public Use
  Company Number: US-ASTRAZENECA-2011SE12720

PATIENT
  Age: 49 Year
  Sex: Female
  Weight: 87.3 kg

DRUGS (3)
  1. SEROQUEL [Suspect]
     Route: 048
  2. LAMICTAL [Concomitant]
     Indication: DEPRESSION
     Route: 048
     Dates: start: 200309
  3. LAMICTAL [Concomitant]
     Indication: BIPOLAR DISORDER
     Route: 048
     Dates: start: 200309

REACTIONS (3)
  - Pancreatitis [Unknown]
  - Diabetic coma [Unknown]
  - Type 2 diabetes mellitus [Unknown]
